FAERS Safety Report 8114865-3 (Version None)
Quarter: 2012Q1

REPORT INFORMATION
  Report Type: 
  Country: None (occurrence: None)
  Receive Date: 20120201
  Receipt Date: 20120126
  Transmission Date: 20120608
  Serious: Yes (Death, Hospitalization)
  Sender: FDA-Public Use
  Company Number: 129194

PATIENT
  Age: 63 Year
  Sex: Female

DRUGS (1)
  1. METHOTREXATE [Suspect]

REACTIONS (16)
  - CARDIAC FAILURE [None]
  - PULMONARY EMBOLISM [None]
  - THROMBOCYTOPENIA [None]
  - PULMONARY HYPERTENSION [None]
  - HYPOXIA [None]
  - CARDIAC ARREST [None]
  - CARDIOMEGALY [None]
  - COR PULMONALE ACUTE [None]
  - SJOGREN'S SYNDROME [None]
  - BLOOD POTASSIUM DECREASED [None]
  - PULMONARY FIBROSIS [None]
  - BLOOD GLUCOSE INCREASED [None]
  - RENAL FAILURE ACUTE [None]
  - HAEMOGLOBIN DECREASED [None]
  - RESPIRATORY DISTRESS [None]
  - DIFFUSE ALVEOLAR DAMAGE [None]
